FAERS Safety Report 9721791 (Version 1)
Quarter: 2013Q4

REPORT INFORMATION
  Report Type: Spontaneous
  Country: US (occurrence: US)
  Receive Date: 20131201
  Receipt Date: 20131201
  Transmission Date: 20140711
  Serious: No
  Sender: FDA-Public Use
  Company Number: US-ABBVIE-13P-163-1157365-00

PATIENT
  Age: 65 Year
  Sex: Male
  Weight: 76.27 kg

DRUGS (6)
  1. ANDROGEL [Suspect]
     Indication: BLOOD TESTOSTERONE DECREASED
     Route: 061
     Dates: start: 2011, end: 2012
  2. ANDROGEL [Suspect]
     Dates: start: 2012, end: 2012
  3. ANDROGEL [Suspect]
     Dates: start: 201306, end: 201309
  4. ANDROGEL [Suspect]
     Dates: start: 201309
  5. LEVOTHYROXINE [Concomitant]
     Indication: PRODUCT USED FOR UNKNOWN INDICATION
  6. ATORVASTATIN [Concomitant]
     Indication: PRODUCT USED FOR UNKNOWN INDICATION

REACTIONS (4)
  - Drug ineffective [Unknown]
  - Loss of libido [Unknown]
  - Asthenia [Unknown]
  - Prostatic specific antigen increased [Recovered/Resolved]
